FAERS Safety Report 10621468 (Version 1)
Quarter: 2014Q4

REPORT INFORMATION
  Report Type: Spontaneous
  Country: US (occurrence: None)
  Receive Date: 20141126
  Receipt Date: 20141126
  Transmission Date: 20150529
  Serious: Yes (Hospitalization)
  Sender: FDA-Public Use
  Company Number: None

PATIENT
  Age: 67 Year
  Sex: Male
  Weight: 133.2 kg

DRUGS (2)
  1. BENDAMUSTINE HYDROCHLORIDE [Suspect]
     Active Substance: BENDAMUSTINE HYDROCHLORIDE
  2. RITUXIMAB(MOAB C2B8 ANTI CD20, CHIMERIC) [Suspect]
     Active Substance: RITUXIMAB

REACTIONS (7)
  - Neoplasm malignant [None]
  - Dysarthria [None]
  - Nuclear magnetic resonance imaging brain abnormal [None]
  - Respiratory arrest [None]
  - Diplopia [None]
  - Asthenia [None]
  - Central nervous system neoplasm [None]

NARRATIVE: CASE EVENT DATE: 20141125
